FAERS Safety Report 14586949 (Version 2)
Quarter: 2018Q2

REPORT INFORMATION
  Report Type: Spontaneous
  Country: BE (occurrence: BE)
  Receive Date: 20180301
  Receipt Date: 20180515
  Transmission Date: 20180711
  Serious: Yes (Hospitalization)
  Sender: FDA-Public Use
  Company Number: BE-IPSEN BIOPHARMACEUTICALS, INC.-2018-03187

PATIENT
  Age: 73 Year
  Sex: Male
  Weight: 76 kg

DRUGS (10)
  1. IRINOTECAN LIPOSOME [Suspect]
     Active Substance: IRINOTECAN
     Indication: COLORECTAL CANCER METASTATIC
     Dosage: NOT REPORTED
     Route: 042
  2. IRINOTECAN LIPOSOME [Suspect]
     Active Substance: IRINOTECAN
     Indication: OFF LABEL USE
  3. LEUCOVORIN. [Suspect]
     Active Substance: LEUCOVORIN
     Indication: COLORECTAL CANCER METASTATIC
     Route: 042
  4. PANTOMED [Concomitant]
  5. AFLIBERCEPT [Suspect]
     Active Substance: AFLIBERCEPT
     Indication: COLORECTAL CANCER METASTATIC
     Route: 042
     Dates: start: 20170713, end: 20170713
  6. SOFRASOLONE [Concomitant]
     Active Substance: FRAMYCETIN SULFATE\NAPHAZOLINE NITRATE\PREDNISOLONE ACETATE
  7. AFLIBERCEPT [Suspect]
     Active Substance: AFLIBERCEPT
     Route: 042
     Dates: start: 20170713, end: 20170713
  8. 5-FU [Suspect]
     Active Substance: FLUOROURACIL
     Indication: COLORECTAL CANCER METASTATIC
     Route: 042
  9. RUPATAL [Concomitant]
  10. NEUPOGEN [Concomitant]
     Active Substance: FILGRASTIM

REACTIONS (3)
  - Off label use [Unknown]
  - Hypertension [Not Recovered/Not Resolved]
  - Mucosal inflammation [Not Recovered/Not Resolved]

NARRATIVE: CASE EVENT DATE: 20170727
